FAERS Safety Report 14511247 (Version 1)
Quarter: 2018Q1

REPORT INFORMATION
  Report Type: Spontaneous
  Country: FR (occurrence: FR)
  Receive Date: 20180209
  Receipt Date: 20180209
  Transmission Date: 20180509
  Serious: Yes (Hospitalization)
  Sender: FDA-Public Use
  Company Number: FR-SHIRE-FR201801920

PATIENT

DRUGS (1)
  1. ELAPRASE [Suspect]
     Active Substance: IDURSULFASE
     Indication: PRODUCT USED FOR UNKNOWN INDICATION
     Dosage: 3VIALS PER INFUSION,12 VIALS/MONTH
     Route: 065
     Dates: end: 2017

REACTIONS (2)
  - Nervous system disorder [Unknown]
  - Condition aggravated [Unknown]
